FAERS Safety Report 25035950 (Version 1)
Quarter: 2025Q1

REPORT INFORMATION
  Report Type: Spontaneous
  Country: US (occurrence: US)
  Receive Date: 20250304
  Receipt Date: 20250304
  Transmission Date: 20250409
  Serious: Yes (Hospitalization, Other)
  Sender: AUROBINDO
  Company Number: US-MLMSERVICE-20250212-PI407356-00029-1

PATIENT
  Age: 27 Year
  Sex: Female

DRUGS (2)
  1. ACETAMINOPHEN [Suspect]
     Active Substance: ACETAMINOPHEN
     Indication: Migraine
     Route: 048
  2. ACETAMINOPHEN [Suspect]
     Active Substance: ACETAMINOPHEN
     Indication: Pain

REACTIONS (7)
  - Dry mouth [Unknown]
  - Abdominal pain upper [Unknown]
  - Vomiting [Unknown]
  - Toxicity to various agents [Unknown]
  - Liver function test abnormal [Unknown]
  - Incorrect dose administered [Unknown]
  - Tachycardia [Unknown]
